FAERS Safety Report 5623974-X (Version None)
Quarter: 2008Q1

REPORT INFORMATION
  Report Type: 
  Country: None (occurrence: None)
  Receive Date: 20080208
  Receipt Date: 20080208
  Transmission Date: 20080703
  Serious: Yes (Hospitalization)
  Sender: FDA-Public Use
  Company Number: None

PATIENT
  Age: 17 Month
  Sex: Female
  Weight: 10.1 kg

DRUGS (3)
  1. RILUZOLE [Suspect]
     Indication: SPINAL MUSCULAR ATROPHY
     Dosage: 25MG TWICE ADAY PO
     Route: 048
     Dates: start: 20041119, end: 20050523
  2. TYLENOL SUSPENSION [Concomitant]
  3. GLYCOLAX [Concomitant]

REACTIONS (1)
  - GASTROSTOMY TUBE INSERTION [None]
